FAERS Safety Report 5130507-3 (Version None)
Quarter: 2006Q4

REPORT INFORMATION
  Report Type: 
  Country: None (occurrence: None)
  Receive Date: 20061019
  Receipt Date: 20061013
  Transmission Date: 20070319
  Serious: Yes (Other)
  Sender: FDA-Public Use
  Company Number: JP-JPN-A200604216

PATIENT

DRUGS (4)
  1. HEPSERA [Suspect]
     Route: 048
  2. ZEFIX [Suspect]
     Route: 048
  3. FLUTIDE DISKUS [Concomitant]
     Route: 055
  4. SEREVENT [Concomitant]
     Route: 055

REACTIONS (2)
  - DYSPNOEA [None]
  - PULMONARY FIBROSIS [None]
